FAERS Safety Report 8367661-6 (Version None)
Quarter: 2012Q2

REPORT INFORMATION
  Report Type: 
  Country: None (occurrence: None)
  Receive Date: 20120517
  Receipt Date: 20110725
  Transmission Date: 20120825
  Serious: Yes (Death, Other)
  Sender: FDA-Public Use
  Company Number: PHHY2011AU116513

PATIENT
  Age: 40 Year
  Sex: Male

DRUGS (5)
  1. RITUXIMAB [Concomitant]
     Indication: SCLERODERMA
     Dosage: 375 MG/M2, WEEKLY
  2. CYCLOSPORINE [Suspect]
     Indication: SCLERODERMA
  3. CYCLOSPORINE [Suspect]
     Indication: CHRONIC GRAFT VERSUS HOST DISEASE IN SKIN
     Dosage: UNK UKN, UNK
  4. PREDNISOLONE [Concomitant]
     Indication: CHRONIC GRAFT VERSUS HOST DISEASE IN SKIN
     Dosage: UNK UKN, UNK
  5. RITUXIMAB [Concomitant]
     Indication: CHRONIC GRAFT VERSUS HOST DISEASE IN SKIN

REACTIONS (3)
  - SEPSIS [None]
  - CHRONIC GRAFT VERSUS HOST DISEASE IN SKIN [None]
  - NO THERAPEUTIC RESPONSE [None]
